FAERS Safety Report 5445383-9 (Version None)
Quarter: 2007Q3

REPORT INFORMATION
  Report Type: 
  Country: None (occurrence: None)
  Receive Date: 20070906
  Receipt Date: 20070605
  Transmission Date: 20080115
  Serious: No
  Sender: FDA-Public Use
  Company Number: A0654294A

PATIENT
  Age: 54 Year
  Sex: Male

DRUGS (9)
  1. REQUIP [Suspect]
     Indication: RESTLESS LEGS SYNDROME
     Dosage: 2MG PER DAY
     Route: 048
     Dates: start: 20070511, end: 20070525
  2. PROTONIX [Concomitant]
  3. LIPITOR [Concomitant]
  4. TRICOR [Concomitant]
  5. PLAVIX [Concomitant]
  6. TOPROL-XL [Concomitant]
  7. NITRATE [Concomitant]
  8. ASPIRIN [Concomitant]
  9. CIPROFLOXACIN HCL [Concomitant]

REACTIONS (2)
  - DRUG SCREEN FALSE POSITIVE [None]
  - SOMNOLENCE [None]
